FAERS Safety Report 9890282 (Version 2)
Quarter: 2014Q1

REPORT INFORMATION
  Report Type: Report from Study
  Country: US (occurrence: US)
  Receive Date: 20140212
  Receipt Date: 20140212
  Transmission Date: 20141002
  Serious: Yes (Disabling, Other)
  Sender: FDA-Public Use
  Company Number: US-ROCHE-1283929

PATIENT
  Age: 63 Year
  Sex: Male
  Weight: 91.25 kg

DRUGS (7)
  1. AVASTIN [Suspect]
     Indication: NON-SMALL CELL LUNG CANCER
     Route: 042
     Dates: start: 201301
  2. XARELTO [Concomitant]
     Indication: ANTICOAGULANT THERAPY
     Dosage: ONCE A DAY
     Route: 065
  3. FOLIC ACID [Concomitant]
     Dosage: ONCE A DAY
     Route: 065
  4. VITAMIN D3 [Concomitant]
  5. LOSARTAN [Concomitant]
     Indication: BLOOD PRESSURE
     Dosage: 100-12.5, BY MONTH, ONCE A DAY
     Route: 065
  6. VITAMIN B12 [Concomitant]
     Route: 065
  7. VITAMIN D3 [Concomitant]
     Dosage: ONCE A DAY
     Route: 065

REACTIONS (15)
  - Bone disorder [Recovering/Resolving]
  - Pain in extremity [Not Recovered/Not Resolved]
  - Neck pain [Not Recovered/Not Resolved]
  - Arthralgia [Not Recovered/Not Resolved]
  - Myalgia [Not Recovered/Not Resolved]
  - Nerve compression [Not Recovered/Not Resolved]
  - Rectal haemorrhage [Not Recovered/Not Resolved]
  - Headache [Not Recovered/Not Resolved]
  - Bone density decreased [Not Recovered/Not Resolved]
  - Muscular weakness [Not Recovered/Not Resolved]
  - Lacrimation increased [Not Recovered/Not Resolved]
  - Back pain [Recovering/Resolving]
  - Somnolence [Not Recovered/Not Resolved]
  - Hypokinesia [Recovering/Resolving]
  - Fatigue [Recovering/Resolving]
